FAERS Safety Report 4639950-X (Version None)
Quarter: 2005Q2

REPORT INFORMATION
  Report Type: 
  Country: None (occurrence: None)
  Receive Date: 20050420
  Receipt Date: 20050408
  Transmission Date: 20051028
  Serious: Yes (Death, Other)
  Sender: FDA-Public Use
  Company Number: US-BRISTOL-MYERS SQUIBB COMPANY-12929980

PATIENT
  Age: 77 Year
  Sex: Female
  Weight: 91 kg

DRUGS (2)
  1. COUMADIN [Suspect]
     Dosage: TREATMENT DURATION OF A FEW YEARS
     Dates: end: 20050101
  2. PRAVACHOL [Suspect]
     Dates: end: 20050101

REACTIONS (2)
  - BREAST CANCER [None]
  - DEATH [None]
